FAERS Safety Report 4773890-0 (Version None)
Quarter: 2005Q3

REPORT INFORMATION
  Report Type: 
  Country: None (occurrence: None)
  Receive Date: 20050920
  Receipt Date: 20050707
  Transmission Date: 20060218
  Serious: Yes (Hospitalization)
  Sender: FDA-Public Use
  Company Number: HQWYE105611JUL05

PATIENT
  Sex: Female

DRUGS (5)
  1. ENBREL [Suspect]
     Indication: RHEUMATOID ARTHRITIS
     Route: 058
     Dates: start: 20050513
  2. NIFEDIPINE [Concomitant]
     Route: 048
     Dates: start: 19920601
  3. PENICILLAMINE [Concomitant]
     Route: 048
     Dates: start: 20041112
  4. ALENDRONATE SODIUM [Concomitant]
     Route: 048
     Dates: start: 20041112
  5. ISONIAZID [Concomitant]
     Route: 048
     Dates: start: 20050614

REACTIONS (5)
  - ASCITES [None]
  - AUTOIMMUNE HEPATITIS [None]
  - CONDITION AGGRAVATED [None]
  - HEPATIC CIRRHOSIS [None]
  - OEDEMA PERIPHERAL [None]
